FAERS Safety Report 9260437 (Version 1)
Quarter: 2013Q2

REPORT INFORMATION
  Report Type: Spontaneous
  Country: US (occurrence: US)
  Receive Date: 20130429
  Receipt Date: 20130429
  Transmission Date: 20140414
  Serious: No
  Sender: FDA-Public Use
  Company Number: US-PFIZER INC-2013133462

PATIENT
  Sex: Female

DRUGS (9)
  1. NEURONTIN [Suspect]
     Indication: FIBROMYALGIA
     Dosage: 300 MG, 2X/DAY
     Dates: end: 2013
  2. LYRICA [Suspect]
     Indication: FIBROMYALGIA
     Dosage: 150 MG, 4X/DAY
  3. HYDROXYZINE HCL [Suspect]
     Indication: SLEEP DISORDER
     Dosage: UNK
  4. IBUPROFEN [Suspect]
     Indication: FIBROMYALGIA
     Dosage: UNK
  5. ZYRTEC [Concomitant]
     Dosage: UNK
  6. LISINOPRIL [Concomitant]
     Indication: HYPERTENSION
     Dosage: 20 MG/DAY
  7. METOPROLOL [Concomitant]
     Indication: HYPERTENSION
     Dosage: 25 MG/DAY
  8. TYLENOL [Concomitant]
     Dosage: UNK
  9. HYDROCHLOROTHIAZIDE [Concomitant]
     Indication: FLUID RETENTION
     Dosage: UNK

REACTIONS (9)
  - Drug ineffective [Unknown]
  - Oedema peripheral [Recovering/Resolving]
  - Weight increased [Unknown]
  - Food craving [Unknown]
  - Somnolence [Recovered/Resolved]
  - Logorrhoea [Unknown]
  - Disturbance in attention [Unknown]
  - Gastric disorder [Unknown]
  - Off label use [Unknown]
